FAERS Safety Report 7383156-0 (Version None)
Quarter: 2011Q1

REPORT INFORMATION
  Report Type: 
  Country: None (occurrence: None)
  Receive Date: 20110325
  Receipt Date: 20110325
  Transmission Date: 20110831
  Serious: Yes (Hospitalization)
  Sender: FDA-Public Use
  Company Number: None

PATIENT
  Age: 53 Year
  Sex: Female
  Weight: 165.1 kg

DRUGS (4)
  1. HYDREA [Suspect]
     Indication: POLYCYTHAEMIA VERA
     Dosage: PO RECENT X 3 MOST
     Route: 048
  2. HYDROXYUREA [Concomitant]
  3. LISINOPRIL AND HYDROCHLOROTHIAZIDE [Concomitant]
  4. NORVASC [Concomitant]

REACTIONS (2)
  - CELLULITIS [None]
  - ULCER [None]
